FAERS Safety Report 9173438 (Version 1)
Quarter: 2013Q1

REPORT INFORMATION
  Report Type: Spontaneous
  Country: ES (occurrence: ES)
  Receive Date: 20130320
  Receipt Date: 20130320
  Transmission Date: 20140127
  Serious: Yes (Other)
  Sender: FDA-Public Use
  Company Number: ES-BAYER-2013-032181

PATIENT
  Age: 40 Year
  Sex: Female

DRUGS (2)
  1. ACTIRA [Suspect]
     Indication: BRONCHITIS
     Dosage: 400 MG, QD
     Route: 048
     Dates: start: 20130211, end: 20130213
  2. FLUIDASA [Suspect]
     Route: 048
     Dates: start: 20130211

REACTIONS (4)
  - Dry mouth [Recovered/Resolved]
  - Tongue disorder [Recovered/Resolved]
  - Pharyngeal disorder [Recovered/Resolved]
  - Dizziness [Recovered/Resolved]
